FAERS Safety Report 4774774-4 (Version None)
Quarter: 2005Q3

REPORT INFORMATION
  Report Type: 
  Country: None (occurrence: None)
  Receive Date: 20050921
  Receipt Date: 20050915
  Transmission Date: 20060218
  Serious: Yes (Death)
  Sender: FDA-Public Use
  Company Number: US-MERCK-0509USA02045

PATIENT
  Age: 70 Year
  Sex: Female

DRUGS (3)
  1. VYTORIN [Suspect]
     Indication: BLOOD CHOLESTEROL INCREASED
     Route: 048
     Dates: start: 20010101
  2. PAROXETINE [Concomitant]
     Route: 048
  3. DIOVAN [Concomitant]
     Route: 048

REACTIONS (1)
  - EMPHYSEMA [None]
